FAERS Safety Report 21243600 (Version 1)
Quarter: 2022Q3

REPORT INFORMATION
  Report Type: Spontaneous
  Country: SI (occurrence: SI)
  Receive Date: 20220823
  Receipt Date: 20220823
  Transmission Date: 20221027
  Serious: Yes (Other)
  Sender: FDA-Public Use
  Company Number: SI-NOVARTISPH-NVSC2022SI187841

PATIENT
  Age: 71 Year
  Sex: Female

DRUGS (4)
  1. RIBOCICLIB [Suspect]
     Active Substance: RIBOCICLIB
     Indication: Hormone receptor positive HER2 negative breast cancer
     Dosage: 600 MG, QD (21 DAYS ON, 7 DAYS OFF)
     Route: 065
     Dates: start: 201808, end: 202009
  2. VITAMIN D [Concomitant]
     Active Substance: VITAMIN D NOS
     Indication: Bone density decreased
     Dosage: UNK
     Route: 065
  3. LETROZOLE [Concomitant]
     Active Substance: LETROZOLE
     Indication: Hormone receptor positive HER2 negative breast cancer
     Dosage: 2.5 MG, QD
     Route: 065
     Dates: start: 201808
  4. ZOLEDRONIC ACID [Concomitant]
     Active Substance: ZOLEDRONIC ACID
     Indication: Hormone receptor positive HER2 negative breast cancer
     Dosage: 4 MG, Q4W
     Route: 065
     Dates: start: 201808

REACTIONS (3)
  - Skin lesion [Recovering/Resolving]
  - Vitiligo [Recovering/Resolving]
  - Neutropenia [Unknown]
